FAERS Safety Report 8429211-5 (Version None)
Quarter: 2012Q2

REPORT INFORMATION
  Report Type: 
  Country: None (occurrence: None)
  Receive Date: 20120612
  Receipt Date: 20120606
  Transmission Date: 20120825
  Serious: Yes (Other)
  Sender: FDA-Public Use
  Company Number: PHHY2012MX049340

PATIENT
  Sex: Male

DRUGS (8)
  1. LIPITOR [Concomitant]
     Dosage: 0.5 DF, UNK
     Dates: start: 20060101
  2. METFORMIN HCL [Concomitant]
     Dosage: 2 DF, UNK
     Dates: start: 20060101
  3. AKATINOL [Concomitant]
     Dosage: 2 DF, UNK
     Dates: start: 20100101
  4. NEORAL [Concomitant]
     Dosage: 325 MG, UNK
     Dates: start: 20080101
  5. PLAVIX [Concomitant]
     Dosage: 1 DF, UNK
     Dates: start: 20100101
  6. LACETIL [Concomitant]
     Dosage: 2 DF, UNK
     Dates: start: 20100101
  7. MYFORTIC [Suspect]
     Indication: RENAL TRANSPLANT
     Dosage: 360 MG, BID
  8. MEMANTINE HYDROCHLORIDE [Concomitant]
     Dosage: 2 DF, UNK
     Dates: start: 20100101

REACTIONS (2)
  - AMNESIA [None]
  - VISUAL IMPAIRMENT [None]
